FAERS Safety Report 7432668-X (Version None)
Quarter: 2011Q2

REPORT INFORMATION
  Report Type: 
  Country: None (occurrence: None)
  Receive Date: 20110422
  Receipt Date: 20110420
  Transmission Date: 20111010
  Serious: Yes (Other)
  Sender: FDA-Public Use
  Company Number: US-B.I. PHARMACEUTICALS,INC./RIDGEFIELD-2011-BP-08761BP

PATIENT
  Age: 62 Year
  Sex: Male

DRUGS (6)
  1. EXCEDRIN (MIGRAINE) [Concomitant]
  2. METOPROLOL TARTRATE [Concomitant]
     Indication: HYPERTENSION
     Dosage: 100 MG
     Route: 048
     Dates: start: 20070101
  3. DICLOFENAC [Concomitant]
     Indication: ANTIINFLAMMATORY THERAPY
  4. FLUTICASONE PROPIONATE [Concomitant]
     Indication: HOUSE DUST ALLERGY
  5. DICLOFENAC [Concomitant]
     Indication: PAIN
     Dosage: 75 MG
     Route: 048
     Dates: start: 20100101
  6. PRADAXA [Suspect]
     Indication: ATRIAL FIBRILLATION
     Dosage: 300 MG
     Route: 048
     Dates: start: 20110220

REACTIONS (4)
  - THROAT TIGHTNESS [None]
  - GINGIVAL PAIN [None]
  - SWOLLEN TONGUE [None]
  - INSOMNIA [None]
